FAERS Safety Report 8435380-3 (Version None)
Quarter: 2012Q2

REPORT INFORMATION
  Report Type: 
  Country: None (occurrence: None)
  Receive Date: 20120614
  Receipt Date: 20120608
  Transmission Date: 20120825
  Serious: Yes (Other)
  Sender: FDA-Public Use
  Company Number: PHHY2012CA050431

PATIENT
  Sex: Female

DRUGS (1)
  1. ZOLEDRONOC ACID [Suspect]
     Indication: OSTEOPOROSIS
     Dosage: UNK UKN, UNK
     Route: 042
     Dates: start: 20110809

REACTIONS (6)
  - PAIN IN EXTREMITY [None]
  - DYSSTASIA [None]
  - BRONCHITIS [None]
  - SCIATIC NERVE NEUROPATHY [None]
  - ARTHRALGIA [None]
  - RENAL PAIN [None]
